FAERS Safety Report 20507354 (Version 1)
Quarter: 2022Q1

REPORT INFORMATION
  Report Type: Spontaneous
  Country: GB (occurrence: GB)
  Receive Date: 20220223
  Receipt Date: 20220223
  Transmission Date: 20220424
  Serious: Yes (Hospitalization)
  Sender: FDA-Public Use
  Company Number: GB-NOVARTISPH-PHHY2019GB108013

PATIENT
  Age: 15 Year
  Sex: Female
  Weight: 56.3 kg

DRUGS (40)
  1. AZATHIOPRINE [Suspect]
     Active Substance: AZATHIOPRINE
     Indication: Crohn^s disease
     Dosage: 100 MG, QD
     Route: 048
     Dates: start: 20121011, end: 20181011
  2. METHOTREXATE [Suspect]
     Active Substance: METHOTREXATE
     Indication: Crohn^s disease
     Dosage: 22.5 MG, QW
     Route: 048
     Dates: start: 20170925
  3. HUMIRA [Suspect]
     Active Substance: ADALIMUMAB
     Indication: Crohn^s disease
     Dosage: 40 MG, QW
     Route: 058
     Dates: start: 20131209, end: 20190408
  4. AMITRIPTYLINE [Concomitant]
     Active Substance: AMITRIPTYLINE
     Indication: Relaxation therapy
     Dosage: 50 MG, QD
     Route: 048
     Dates: start: 20150827
  5. AMITRIPTYLINE [Concomitant]
     Active Substance: AMITRIPTYLINE
     Indication: Sleep disorder
     Dosage: UNK
     Route: 065
  6. SODIUM PHOSPHATE, MONOBASIC, ANHYDROUS [Concomitant]
     Active Substance: SODIUM PHOSPHATE, MONOBASIC, ANHYDROUS
     Indication: Mineral supplementation
     Dosage: 64 MMOL, QD
     Route: 048
     Dates: start: 20190225, end: 20190227
  7. SODIUM PHOSPHATE, MONOBASIC, ANHYDROUS [Concomitant]
     Active Substance: SODIUM PHOSPHATE, MONOBASIC, ANHYDROUS
     Dosage: 96 MMOL, QD
     Route: 048
     Dates: start: 20190301, end: 20190308
  8. SODIUM PHOSPHATE, MONOBASIC, ANHYDROUS [Concomitant]
     Active Substance: SODIUM PHOSPHATE, MONOBASIC, ANHYDROUS
     Dosage: 48 MMOL, QD
     Route: 048
     Dates: start: 20190308, end: 20190312
  9. SODIUM PHOSPHATE, MONOBASIC, ANHYDROUS [Concomitant]
     Active Substance: SODIUM PHOSPHATE, MONOBASIC, ANHYDROUS
     Dosage: UNK
     Route: 065
  10. POLYETHYLENE GLYCOLS [Concomitant]
     Active Substance: POLYETHYLENE GLYCOLS
     Indication: Constipation
     Dosage: UNK, BID (1-2 SACHETS)
     Route: 048
     Dates: start: 20190301
  11. POLYETHYLENE GLYCOLS [Concomitant]
     Active Substance: POLYETHYLENE GLYCOLS
     Dosage: 2, QD (1-2 SACHETS)
     Route: 048
     Dates: start: 20190301
  12. DOMPERIDONE MALEATE [Concomitant]
     Active Substance: DOMPERIDONE MALEATE
     Indication: Vomiting
     Dosage: UNK
     Route: 065
  13. DOMPERIDONE MALEATE [Concomitant]
     Active Substance: DOMPERIDONE MALEATE
     Indication: Nausea
     Dosage: 30 ML, QD
     Route: 048
     Dates: start: 20190308
  14. DOMPERIDONE MALEATE [Concomitant]
     Active Substance: DOMPERIDONE MALEATE
     Indication: Gastrooesophageal reflux disease
     Dosage: UNK
     Route: 065
  15. DOMPERIDONE MALEATE [Concomitant]
     Active Substance: DOMPERIDONE MALEATE
     Route: 065
  16. OMEPRAZOLE [Concomitant]
     Active Substance: OMEPRAZOLE
     Indication: Gastritis
     Dosage: 20 MG, QD
     Route: 048
     Dates: start: 20130213, end: 20190315
  17. OMEPRAZOLE [Concomitant]
     Active Substance: OMEPRAZOLE
     Dosage: 10 MG, QD
     Route: 048
     Dates: start: 20190316, end: 20190327
  18. BUTYLSCOPOLAMINE BROMIDE [Concomitant]
     Active Substance: BUTYLSCOPOLAMINE BROMIDE
     Indication: Crohn^s disease
     Dosage: 20 MG, QD
     Route: 048
     Dates: start: 20190225, end: 20190225
  19. BUTYLSCOPOLAMINE BROMIDE [Concomitant]
     Active Substance: BUTYLSCOPOLAMINE BROMIDE
     Dosage: 30 MG, QD
     Route: 042
     Dates: start: 20190302, end: 20190314
  20. BUTYLSCOPOLAMINE BROMIDE [Concomitant]
     Active Substance: BUTYLSCOPOLAMINE BROMIDE
     Dosage: 30 MG, QD
     Route: 042
     Dates: start: 20190315
  21. CARBOHYDRATES\FATTY ACIDS\MINERALS\PROTEIN\VITAMINS [Concomitant]
     Active Substance: CARBOHYDRATES\FATTY ACIDS\MINERALS\PROTEIN\VITAMINS
     Indication: Crohn^s disease
     Dosage: 1400 ML, QD (ADMINISTERED VIA NASOGASTRIC TUBE)
     Route: 065
     Dates: start: 20171120, end: 20180103
  22. CARBOHYDRATES\FATTY ACIDS\MINERALS\PROTEIN\VITAMINS [Concomitant]
     Active Substance: CARBOHYDRATES\FATTY ACIDS\MINERALS\PROTEIN\VITAMINS
     Dosage: 1400 ML, QD (ADMINISTERED VIA NASOGASTRIC TUBE)
     Route: 065
     Dates: start: 20180501, end: 20180613
  23. CARBOHYDRATES\FATTY ACIDS\MINERALS\PROTEIN\VITAMINS [Concomitant]
     Active Substance: CARBOHYDRATES\FATTY ACIDS\MINERALS\PROTEIN\VITAMINS
     Dosage: 1555 ML, QD (ADMINISTERED VIA NASOGASTRIC TUBE)
     Route: 065
     Dates: start: 20190220, end: 20190303
  24. TRAMADOL [Concomitant]
     Active Substance: TRAMADOL
     Indication: Pain management
     Dosage: 150 MG, QD
     Route: 041
     Dates: start: 20190302, end: 20190314
  25. TRAMADOL [Concomitant]
     Active Substance: TRAMADOL
     Dosage: 150 MG, QD
     Route: 048
     Dates: start: 20190315
  26. FOLIC ACID [Concomitant]
     Active Substance: FOLIC ACID
     Indication: Prophylaxis of nausea and vomiting
     Dosage: 5 MG, QW
     Route: 048
     Dates: start: 20181018
  27. FOLIC ACID [Concomitant]
     Active Substance: FOLIC ACID
     Dosage: UNK
     Route: 065
  28. FOLIC ACID [Concomitant]
     Active Substance: FOLIC ACID
     Route: 065
  29. SODIUM FEREDETATE [Concomitant]
     Active Substance: SODIUM FEREDETATE
     Indication: Mineral supplementation
     Dosage: 15 MG, QD
     Route: 048
     Dates: start: 20140425
  30. ONDANSETRON [Concomitant]
     Active Substance: ONDANSETRON
     Indication: Nausea
     Dosage: 10.72 MG, QD
     Route: 048
     Dates: start: 20190308, end: 20190311
  31. ONDANSETRON [Concomitant]
     Active Substance: ONDANSETRON
     Indication: Vomiting
     Dosage: 18 MG, QD
     Route: 048
     Dates: start: 20190311
  32. GABAPENTIN [Concomitant]
     Active Substance: GABAPENTIN
     Indication: Pain management
     Dosage: 600 MG, QD
     Route: 048
     Dates: start: 20190305, end: 20190321
  33. GABAPENTIN [Concomitant]
     Active Substance: GABAPENTIN
     Dosage: 900 MG, QD
     Route: 048
     Dates: start: 20190321
  34. BISACODYL [Concomitant]
     Active Substance: BISACODYL
     Indication: Constipation
     Dosage: 5 MG, QD
     Route: 048
     Dates: start: 20190327
  35. MELATONIN [Concomitant]
     Active Substance: MELATONIN
     Indication: Sleep disorder
     Dosage: 2-4 MG, QD
     Route: 048
     Dates: start: 20190305
  36. MELATONIN [Concomitant]
     Active Substance: MELATONIN
     Dosage: 1, QD (2-4 MG)
     Route: 048
     Dates: start: 20190305
  37. DIORALYTE [Concomitant]
     Active Substance: CITRIC ACID MONOHYDRATE\DEXTROSE\POTASSIUM CATION\SODIUM CHLORIDE
     Indication: Fluid replacement
     Dosage: 1 DF, UNK
     Route: 048
     Dates: start: 20190303
  38. DICYCLOMINE HYDROCHLORIDE [Concomitant]
     Active Substance: DICYCLOMINE HYDROCHLORIDE
     Indication: Crohn^s disease
     Dosage: 30 MG, QD (10MG ,TID)
     Route: 048
     Dates: start: 20141201
  39. NEOCATE JUNIOR WITH PREBIOTICS [Concomitant]
     Indication: Crohn^s disease
     Dosage: 1800 ML, Q24H
     Route: 065
     Dates: start: 20190304
  40. HYALURONATE SODIUM [Concomitant]
     Active Substance: HYALURONATE SODIUM
     Indication: Dry eye
     Dosage: UNK
     Route: 047
     Dates: start: 20140904

REACTIONS (1)
  - Crohn^s disease [Recovered/Resolved]

NARRATIVE: CASE EVENT DATE: 20190407
